FAERS Safety Report 18441762 (Version 1)
Quarter: 2020Q4

REPORT INFORMATION
  Report Type: Spontaneous
  Country: FR (occurrence: FR)
  Receive Date: 20201029
  Receipt Date: 20201029
  Transmission Date: 20210114
  Serious: Yes (Death)
  Sender: FDA-Public Use
  Company Number: FR-BAXTER-2020BAX021621

PATIENT
  Age: 44 Year
  Sex: Female
  Weight: 64 kg

DRUGS (11)
  1. METHOTREXATE MYLAN [Suspect]
     Active Substance: METHOTREXATE SODIUM
     Indication: PROPHYLAXIS AGAINST TRANSPLANT REJECTION
     Route: 042
     Dates: start: 20200815, end: 20200820
  2. VALACICLOVIR [Concomitant]
     Active Substance: VALACYCLOVIR HYDROCHLORIDE
     Indication: OPPORTUNISTIC INFECTION PROPHYLAXIS
     Route: 048
     Dates: start: 202002
  3. UROMITEXAN [Concomitant]
     Active Substance: MESNA
     Indication: PRODUCT USED FOR UNKNOWN INDICATION
     Route: 065
  4. INEXIUM [Concomitant]
     Active Substance: ESOMEPRAZOLE
     Indication: BURN OESOPHAGEAL
     Route: 048
  5. XOSPATA [Suspect]
     Active Substance: GILTERITINIB
     Indication: ACUTE MYELOID LEUKAEMIA
     Route: 048
     Dates: start: 20200401, end: 202008
  6. THYMOGLOBULIN [Concomitant]
     Active Substance: LAPINE T-LYMPHOCYTE IMMUNE GLOBULIN
     Indication: PRODUCT USED FOR UNKNOWN INDICATION
     Route: 065
  7. ENANTONE LP [Concomitant]
     Active Substance: LEUPROLIDE ACETATE
     Indication: METRORRHAGIA
     Route: 048
  8. BUSILVEX [Suspect]
     Active Substance: BUSULFAN
     Indication: BONE MARROW CONDITIONING REGIMEN
     Dosage: SOLUTION TO DILUTE FOR INFUSION
     Route: 042
     Dates: start: 20200807, end: 20200810
  9. ENDOXAN 1000 MG, POUDRE POUR SOLUTIONINJECTABLE [Suspect]
     Active Substance: CYCLOPHOSPHAMIDE
     Indication: BONE MARROW CONDITIONING REGIMEN
     Route: 042
     Dates: start: 20200811, end: 20200812
  10. INNOVAIR [Concomitant]
     Active Substance: BECLOMETHASONE DIPROPIONATE\FORMOTEROL
     Indication: ASTHMA
     Route: 065
  11. WELLVONE [Concomitant]
     Active Substance: ATOVAQUONE
     Indication: OPPORTUNISTIC INFECTION PROPHYLAXIS
     Dosage: 750 MG/5 ML
     Route: 048
     Dates: start: 202005

REACTIONS (2)
  - Pericarditis constrictive [Fatal]
  - Cardiorenal syndrome [Fatal]

NARRATIVE: CASE EVENT DATE: 20200820
